FAERS Safety Report 4999426-7 (Version None)
Quarter: 2006Q2

REPORT INFORMATION
  Report Type: 
  Country: None (occurrence: None)
  Receive Date: 20060509
  Receipt Date: 20060509
  Transmission Date: 20061013
  Serious: No
  Sender: FDA-Public Use
  Company Number: None

PATIENT
  Age: 78 Year
  Sex: Female

DRUGS (1)
  1. CEFAZOLIN [Suspect]
     Indication: INFECTION
     Dosage: 1 GM IV X 1
     Route: 042
     Dates: start: 20050804

REACTIONS (4)
  - APNOEA [None]
  - CHEST PAIN [None]
  - LOSS OF CONSCIOUSNESS [None]
  - OXYGEN SATURATION DECREASED [None]
